FAERS Safety Report 20030834 (Version 1)
Quarter: 2021Q4

REPORT INFORMATION
  Report Type: Spontaneous
  Country: BE (occurrence: None)
  Receive Date: 20211103
  Receipt Date: 20211103
  Transmission Date: 20220304
  Serious: Yes (Other)
  Sender: FDA-Public Use
  Company Number: 2021A787126

PATIENT
  Age: 57 Year
  Sex: Male

DRUGS (2)
  1. OSIMERTINIB [Suspect]
     Active Substance: OSIMERTINIB
     Indication: Lung neoplasm malignant
     Route: 048
  2. ERLOTINIB [Concomitant]
     Active Substance: ERLOTINIB
     Route: 065

REACTIONS (4)
  - Lung carcinoma cell type unspecified recurrent [Unknown]
  - Fatigue [Unknown]
  - Skin disorder [Unknown]
  - Diarrhoea [Unknown]
